FAERS Safety Report 7054802-6 (Version None)
Quarter: 2010Q4

REPORT INFORMATION
  Report Type: 
  Country: None (occurrence: None)
  Receive Date: 20101021
  Receipt Date: 20101011
  Transmission Date: 20110411
  Serious: Yes (Other)
  Sender: FDA-Public Use
  Company Number: US-AMGEN INC.-KDL437321

PATIENT

DRUGS (18)
  1. ENBREL [Suspect]
     Indication: RHEUMATOID ARTHRITIS
     Dosage: 50 MG, QWK
     Route: 058
     Dates: start: 20080416, end: 20100501
  2. MESALAZINE [Concomitant]
     Dosage: 1.2 G, QID
  3. ASCORBIC ACID [Concomitant]
     Dosage: 500 MG, QD
  4. MELOXICAM [Concomitant]
     Dosage: 15 MG, QD
  5. PREDNISONE TAB [Concomitant]
     Dosage: 5 MG, UNK
  6. CAPTOPRIL [Concomitant]
     Dosage: 25 MG, BID
  7. ATENOLOL [Concomitant]
     Dosage: 25 MG, BID
  8. HYDROXYCHLOROQUINE SULFATE [Concomitant]
     Dosage: 200 MG, QD
  9. SIMVASTATIN [Concomitant]
     Dosage: 40 MG, QD
  10. OMEPRAZOLE [Concomitant]
     Dosage: 30 MG, QD
  11. LEFLUNOMIDE [Concomitant]
     Dosage: 10 MG, QD
  12. CALCITRIOL [Concomitant]
     Dosage: 25 MG, QOD
  13. PROCRIT [Concomitant]
     Dosage: UNK UNK, PRN
  14. MULTI-VITAMINS [Concomitant]
     Dosage: UNK UNK, QD
  15. CALCIUM [Concomitant]
     Dosage: 600 MG, QD
  16. ACTONEL [Concomitant]
     Dosage: 150 MG, QMO
  17. DULOXETINE [Concomitant]
     Dosage: 30 MG, QD
  18. FLAX SEED OIL [Concomitant]
     Dosage: 1000 MG, QD

REACTIONS (16)
  - ACTIVITIES OF DAILY LIVING IMPAIRED [None]
  - ARTHRALGIA [None]
  - BLOOD CREATINE INCREASED [None]
  - CELLULITIS [None]
  - DIPLOPIA [None]
  - DRY MOUTH [None]
  - EAR INFECTION [None]
  - FATIGUE [None]
  - FURUNCLE [None]
  - GASTRIC DISORDER [None]
  - HYPERPARATHYROIDISM SECONDARY [None]
  - MUSCLE SPASMS [None]
  - PAIN [None]
  - RHEUMATOID ARTHRITIS [None]
  - UPPER RESPIRATORY TRACT INFECTION [None]
  - URTICARIA [None]
